FAERS Safety Report 6216548-3 (Version None)
Quarter: 2009Q2

REPORT INFORMATION
  Report Type: 
  Country: None (occurrence: None)
  Receive Date: 20090605
  Receipt Date: 20090519
  Transmission Date: 20091009
  Serious: Yes (Hospitalization)
  Sender: FDA-Public Use
  Company Number: FR-GENENTECH-283468

PATIENT
  Sex: Male

DRUGS (4)
  1. BEVACIZUMAB [Suspect]
     Indication: DRUG USE FOR UNKNOWN INDICATION
     Dosage: UNK
     Route: 065
     Dates: start: 20080124
  2. FLUOROURACIL [Concomitant]
     Indication: DRUG USE FOR UNKNOWN INDICATION
     Dosage: UNK
     Dates: start: 20090106
  3. FOLINIC ACID [Concomitant]
     Indication: DRUG USE FOR UNKNOWN INDICATION
     Dosage: UNK
     Dates: start: 20090106
  4. IRINOTECAN HCL [Concomitant]
     Indication: DRUG USE FOR UNKNOWN INDICATION
     Dosage: UNK
     Dates: start: 20090106

REACTIONS (6)
  - ANAEMIA [None]
  - ATRIAL FIBRILLATION [None]
  - DIARRHOEA [None]
  - HAEMATURIA [None]
  - HYPOKALAEMIA [None]
  - NEUTROPENIA [None]
